FAERS Safety Report 25574276 (Version 2)
Quarter: 2025Q3

REPORT INFORMATION
  Report Type: Spontaneous
  Country: CH (occurrence: CH)
  Receive Date: 20250717
  Receipt Date: 20250814
  Transmission Date: 20251020
  Serious: Yes (Other)
  Sender: ELI LILLY AND COMPANY
  Company Number: CH-ELI_LILLY_AND_COMPANY-CH202507008268

PATIENT
  Sex: Female

DRUGS (1)
  1. OMVOH [Suspect]
     Active Substance: MIRIKIZUMAB-MRKZ
     Indication: Product used for unknown indication
     Route: 065
     Dates: start: 202504

REACTIONS (2)
  - Pancreatitis [Unknown]
  - Bile duct stone [Unknown]
